FAERS Safety Report 19469841 (Version 2)
Quarter: 2022Q1

REPORT INFORMATION
  Report Type: Spontaneous
  Country: LB (occurrence: LB)
  Receive Date: 20210628
  Receipt Date: 20220201
  Transmission Date: 20220424
  Serious: Yes (Hospitalization, Other)
  Sender: FDA-Public Use
  Company Number: LB-PFIZER INC-2021176588

PATIENT
  Age: 62 Year
  Sex: Male

DRUGS (1)
  1. SUTENT [Suspect]
     Active Substance: SUNITINIB MALATE
     Indication: Metastatic renal cell carcinoma
     Dosage: 50 MG, CYCLIC (1X/DAY 2 WEEKS ON 1 WEEK OFF)
     Route: 048
     Dates: start: 202103

REACTIONS (2)
  - COVID-19 [Not Recovered/Not Resolved]
  - Pulmonary fibrosis [Recovering/Resolving]
